FAERS Safety Report 5871193-4 (Version None)
Quarter: 2008Q3

REPORT INFORMATION
  Report Type: 
  Country: None (occurrence: None)
  Receive Date: 20080829
  Receipt Date: 20080818
  Transmission Date: 20090109
  Serious: Yes (Other)
  Sender: FDA-Public Use
  Company Number: 2008BI008173

PATIENT
  Age: 60 Year
  Sex: Female
  Weight: 129.7287 kg

DRUGS (2)
  1. TYSABRI [Suspect]
     Indication: MULTIPLE SCLEROSIS
     Dosage: 300 MG;QM;IV, 300 MG;QW;IV
     Route: 042
     Dates: start: 20061006, end: 20080201
  2. TYSABRI [Suspect]
     Indication: MULTIPLE SCLEROSIS
     Dosage: 300 MG;QM;IV, 300 MG;QW;IV
     Route: 042
     Dates: start: 20080401

REACTIONS (8)
  - AGITATION [None]
  - EAR CONGESTION [None]
  - EAR INFECTION [None]
  - FATIGUE [None]
  - MASS [None]
  - MUSCULAR WEAKNESS [None]
  - SUPERFICIAL SPREADING MELANOMA STAGE III [None]
  - WHEELCHAIR USER [None]
